FAERS Safety Report 15626728 (Version 1)
Quarter: 2018Q4

REPORT INFORMATION
  Report Type: Spontaneous
  Country: JP (occurrence: JP)
  Receive Date: 20181116
  Receipt Date: 20181116
  Transmission Date: 20190205
  Serious: Yes (Other)
  Sender: FDA-Public Use
  Company Number: JP-PFIZER INC-2018458991

PATIENT
  Age: 35 Year
  Sex: Male

DRUGS (1)
  1. CABASER [Suspect]
     Active Substance: CABERGOLINE
     Indication: PROLACTIN-PRODUCING PITUITARY TUMOUR
     Dosage: 1 MG, WEEKLY

REACTIONS (3)
  - Visual pathway disorder [Recovering/Resolving]
  - Visual field defect [Recovering/Resolving]
  - Empty sella syndrome [Recovering/Resolving]
